FAERS Safety Report 7064908-3 (Version None)
Quarter: 2010Q4

REPORT INFORMATION
  Report Type: 
  Country: None (occurrence: None)
  Receive Date: 20101027
  Receipt Date: 20030303
  Transmission Date: 20110411
  Serious: Yes (Congenital Anomaly)
  Sender: FDA-Public Use
  Company Number: US-ROCHE-319452

PATIENT
  Sex: Male
  Weight: 3.8 kg

DRUGS (3)
  1. ACCUTANE [Suspect]
     Indication: PRODUCT USED FOR UNKNOWN INDICATION
     Route: 064
  2. BIRTH CONTROL PILLS [Concomitant]
     Indication: CONTRACEPTION
  3. ANTIBIOTICS [Concomitant]
     Indication: INFECTION

REACTIONS (3)
  - DRUG EXPOSURE DURING PREGNANCY [None]
  - INBORN ERROR OF METABOLISM [None]
  - LACTOSE INTOLERANCE [None]
